FAERS Safety Report 21726800 (Version 1)
Quarter: 2022Q4

REPORT INFORMATION
  Report Type: Spontaneous
  Country: FR (occurrence: FR)
  Receive Date: 20221214
  Receipt Date: 20221214
  Transmission Date: 20230113
  Serious: Yes (Disabling)
  Sender: FDA-Public Use
  Company Number: None

PATIENT
  Age: 50 Year
  Sex: Female

DRUGS (2)
  1. LEVOTHYROXINE [Suspect]
     Active Substance: LEVOTHYROXINE
     Indication: Ovarian cyst
     Route: 048
     Dates: start: 1994, end: 2016
  2. PROMEGESTONE [Suspect]
     Active Substance: PROMEGESTONE
     Indication: Ovarian cyst
     Dosage: TAKEN 21 DAYS/MONTH
     Route: 048
     Dates: start: 1991, end: 2016

REACTIONS (1)
  - Meningioma [Recovered/Resolved with Sequelae]

NARRATIVE: CASE EVENT DATE: 20160504
